FAERS Safety Report 7686148-7 (Version None)
Quarter: 2011Q3

REPORT INFORMATION
  Report Type: 
  Country: None (occurrence: None)
  Receive Date: 20110816
  Receipt Date: 20110725
  Transmission Date: 20111222
  Serious: No
  Sender: FDA-Public Use
  Company Number: US-PFIZER INC-2011169764

PATIENT
  Age: 51 Year
  Sex: Female

DRUGS (1)
  1. DOXYCYCLINE HYCLATE [Suspect]
     Dosage: UNK

REACTIONS (2)
  - DRUG INTOLERANCE [None]
  - DRUG HYPERSENSITIVITY [None]
